FAERS Safety Report 19997466 (Version 1)
Quarter: 2021Q4

REPORT INFORMATION
  Report Type: Spontaneous
  Country: GB (occurrence: GB)
  Receive Date: 20211026
  Receipt Date: 20211026
  Transmission Date: 20220303
  Serious: Yes (Other)
  Sender: FDA-Public Use
  Company Number: None

PATIENT
  Age: 25 Year
  Sex: Female
  Weight: 83.46 kg

DRUGS (1)
  1. VENLAFAXINE [Suspect]
     Active Substance: VENLAFAXINE HYDROCHLORIDE
     Indication: Ill-defined disorder
     Dosage: 375 MILLIGRAM, QD (150MG IN MORNING 225MG AT NIGHT)
     Route: 048
     Dates: start: 20210301

REACTIONS (3)
  - Hyperhidrosis [Not Recovered/Not Resolved]
  - Discomfort [Unknown]
  - Emotional disorder [Unknown]

NARRATIVE: CASE EVENT DATE: 20210401
